FAERS Safety Report 5003570-8 (Version None)
Quarter: 2006Q2

REPORT INFORMATION
  Report Type: 
  Country: None (occurrence: None)
  Receive Date: 20060511
  Receipt Date: 20060428
  Transmission Date: 20061013
  Serious: Yes (Hospitalization, Other)
  Sender: FDA-Public Use
  Company Number: 2006058327

PATIENT
  Age: 58 Year
  Sex: Male

DRUGS (6)
  1. LIPITOR [Suspect]
     Indication: ILL-DEFINED DISORDER
     Dosage: ORAL
     Route: 048
  2. LOSARTAN POTASSIUM AND HYDROCHLOROTHIAZIDE [Concomitant]
  3. ANCORON (AMIODARONE HYDROCHLORIDE) [Concomitant]
  4. ALL OTHER THERAPEUTIC PRODUCTS [Concomitant]
  5. ACETYLSALICYLIC ACID SRT [Concomitant]
  6. FLUOXETINE HYDROCHLORIDE [Concomitant]

REACTIONS (9)
  - AORTIC ANEURYSM [None]
  - ATRIAL FIBRILLATION [None]
  - CORONARY ARTERY INSUFFICIENCY [None]
  - HAEMODYNAMIC INSTABILITY [None]
  - LIBIDO DECREASED [None]
  - POST PROCEDURAL HAEMORRHAGE [None]
  - RENAL FAILURE ACUTE [None]
  - SHOCK [None]
  - URINARY TRACT INFECTION [None]
